FAERS Safety Report 7898085-3 (Version None)
Quarter: 2011Q4

REPORT INFORMATION
  Report Type: 
  Country: None (occurrence: None)
  Receive Date: 20111107
  Receipt Date: 20111101
  Transmission Date: 20120403
  Serious: Yes (Other)
  Sender: FDA-Public Use
  Company Number: CA-PFIZER INC-2011219889

PATIENT
  Age: 73 Year
  Sex: Female

DRUGS (2)
  1. XALATAN [Suspect]
     Dosage: 1 GTT IN RIGHTT EYE, 1X/DAY
     Route: 047
     Dates: start: 20110915
  2. XALATAN [Suspect]
     Indication: GLAUCOMA
     Dosage: 1 GTT IN LEFT EYE, 1X/DAY
     Route: 047
     Dates: start: 20110801

REACTIONS (4)
  - EYE PAIN [None]
  - CORNEAL DISORDER [None]
  - VISION BLURRED [None]
  - OCULAR HYPERTENSION [None]
